FAERS Safety Report 16402779 (Version 2)
Quarter: 2019Q3

REPORT INFORMATION
  Report Type: Spontaneous
  Country: US (occurrence: US)
  Receive Date: 20190607
  Receipt Date: 20190814
  Transmission Date: 20191004
  Serious: Yes (Death, Other)
  Sender: FDA-Public Use
  Company Number: US-BRISTOL-MYERS SQUIBB COMPANY-BMS-2019-053020

PATIENT
  Age: 65 Year
  Sex: Male
  Weight: 120.64 kg

DRUGS (2)
  1. KEYTRUDA [Concomitant]
     Active Substance: PEMBROLIZUMAB
     Indication: PRODUCT USED FOR UNKNOWN INDICATION
     Dosage: UNK
     Route: 065
  2. YERVOY [Suspect]
     Active Substance: IPILIMUMAB
     Indication: METASTATIC MALIGNANT MELANOMA
     Dosage: 100 MILLIGRAM, Q3WK
     Route: 042
     Dates: start: 20190430

REACTIONS (4)
  - Malignant neoplasm progression [Fatal]
  - Respiratory failure [Fatal]
  - Renal failure [Fatal]
  - Sepsis [Fatal]

NARRATIVE: CASE EVENT DATE: 20190526
